FAERS Safety Report 25207141 (Version 1)
Quarter: 2025Q2

REPORT INFORMATION
  Report Type: Spontaneous
  Country: IT (occurrence: IT)
  Receive Date: 20250417
  Receipt Date: 20250417
  Transmission Date: 20250717
  Serious: Yes (Hospitalization)
  Sender: MYLAN
  Company Number: IT-MYLANLABS-2025M1032291

PATIENT
  Age: 52 Year
  Sex: Female

DRUGS (80)
  1. CLOZAPINE [Suspect]
     Active Substance: CLOZAPINE
     Indication: Schizophrenia
  2. CLOZAPINE [Suspect]
     Active Substance: CLOZAPINE
     Route: 065
  3. CLOZAPINE [Suspect]
     Active Substance: CLOZAPINE
     Route: 065
  4. CLOZAPINE [Suspect]
     Active Substance: CLOZAPINE
  5. OLANZAPINE [Suspect]
     Active Substance: OLANZAPINE
     Indication: Schizophrenia
     Dosage: 10 MILLIGRAM, QD
     Dates: start: 2004
  6. OLANZAPINE [Suspect]
     Active Substance: OLANZAPINE
     Dosage: 10 MILLIGRAM, QD
     Dates: start: 2004
  7. OLANZAPINE [Suspect]
     Active Substance: OLANZAPINE
     Dosage: 10 MILLIGRAM, QD
     Route: 065
     Dates: start: 2004
  8. OLANZAPINE [Suspect]
     Active Substance: OLANZAPINE
     Dosage: 10 MILLIGRAM, QD
     Route: 065
     Dates: start: 2004
  9. OLANZAPINE [Suspect]
     Active Substance: OLANZAPINE
  10. OLANZAPINE [Suspect]
     Active Substance: OLANZAPINE
  11. OLANZAPINE [Suspect]
     Active Substance: OLANZAPINE
     Route: 065
  12. OLANZAPINE [Suspect]
     Active Substance: OLANZAPINE
     Route: 065
  13. OLANZAPINE [Suspect]
     Active Substance: OLANZAPINE
     Indication: Schizophrenia
  14. OLANZAPINE [Suspect]
     Active Substance: OLANZAPINE
     Route: 065
  15. OLANZAPINE [Suspect]
     Active Substance: OLANZAPINE
     Route: 065
  16. OLANZAPINE [Suspect]
     Active Substance: OLANZAPINE
  17. RISPERIDONE [Suspect]
     Active Substance: RISPERIDONE
     Indication: Schizophrenia
  18. RISPERIDONE [Suspect]
     Active Substance: RISPERIDONE
     Route: 065
  19. RISPERIDONE [Suspect]
     Active Substance: RISPERIDONE
     Route: 065
  20. RISPERIDONE [Suspect]
     Active Substance: RISPERIDONE
  21. ARIPIPRAZOLE [Suspect]
     Active Substance: ARIPIPRAZOLE
     Indication: Schizophrenia
     Dosage: 400 MILLIGRAM, 28D CYCLE
     Dates: start: 202303
  22. ARIPIPRAZOLE [Suspect]
     Active Substance: ARIPIPRAZOLE
     Dosage: 400 MILLIGRAM, 28D CYCLE
     Route: 030
     Dates: start: 202303
  23. ARIPIPRAZOLE [Suspect]
     Active Substance: ARIPIPRAZOLE
     Dosage: 400 MILLIGRAM, 28D CYCLE
     Route: 030
     Dates: start: 202303
  24. ARIPIPRAZOLE [Suspect]
     Active Substance: ARIPIPRAZOLE
     Dosage: 400 MILLIGRAM, 28D CYCLE
     Dates: start: 202303
  25. QUETIAPINE [Suspect]
     Active Substance: QUETIAPINE
     Indication: Schizophrenia
     Dosage: 500 MILLIGRAM, QD
     Dates: start: 202009
  26. QUETIAPINE [Suspect]
     Active Substance: QUETIAPINE
     Dosage: 500 MILLIGRAM, QD
     Dates: start: 202009
  27. QUETIAPINE [Suspect]
     Active Substance: QUETIAPINE
     Dosage: 500 MILLIGRAM, QD
     Route: 065
     Dates: start: 202009
  28. QUETIAPINE [Suspect]
     Active Substance: QUETIAPINE
     Dosage: 500 MILLIGRAM, QD
     Route: 065
     Dates: start: 202009
  29. QUETIAPINE [Suspect]
     Active Substance: QUETIAPINE
     Dosage: 700 MILLIGRAM, QD
     Dates: start: 202110
  30. QUETIAPINE [Suspect]
     Active Substance: QUETIAPINE
     Dosage: 700 MILLIGRAM, QD
     Dates: start: 202110
  31. QUETIAPINE [Suspect]
     Active Substance: QUETIAPINE
     Dosage: 700 MILLIGRAM, QD
     Route: 065
     Dates: start: 202110
  32. QUETIAPINE [Suspect]
     Active Substance: QUETIAPINE
     Dosage: 700 MILLIGRAM, QD
     Route: 065
     Dates: start: 202110
  33. QUETIAPINE [Suspect]
     Active Substance: QUETIAPINE
     Dosage: 600 MILLIGRAM, QD
     Dates: start: 202203
  34. QUETIAPINE [Suspect]
     Active Substance: QUETIAPINE
     Dosage: 600 MILLIGRAM, QD
     Route: 065
     Dates: start: 202203
  35. QUETIAPINE [Suspect]
     Active Substance: QUETIAPINE
     Dosage: 600 MILLIGRAM, QD
     Dates: start: 202203
  36. QUETIAPINE [Suspect]
     Active Substance: QUETIAPINE
     Dosage: 600 MILLIGRAM, QD
     Route: 065
     Dates: start: 202203
  37. ESCITALOPRAM [Suspect]
     Active Substance: ESCITALOPRAM OXALATE
     Indication: Schizophrenia
  38. ESCITALOPRAM [Suspect]
     Active Substance: ESCITALOPRAM OXALATE
     Route: 065
  39. ESCITALOPRAM [Suspect]
     Active Substance: ESCITALOPRAM OXALATE
     Route: 065
  40. ESCITALOPRAM [Suspect]
     Active Substance: ESCITALOPRAM OXALATE
  41. HALOPERIDOL [Suspect]
     Active Substance: HALOPERIDOL
     Indication: Schizophrenia
  42. HALOPERIDOL [Suspect]
     Active Substance: HALOPERIDOL
  43. HALOPERIDOL [Suspect]
     Active Substance: HALOPERIDOL
     Route: 065
  44. HALOPERIDOL [Suspect]
     Active Substance: HALOPERIDOL
     Route: 065
  45. HALOPERIDOL [Suspect]
     Active Substance: HALOPERIDOL
  46. HALOPERIDOL [Suspect]
     Active Substance: HALOPERIDOL
  47. HALOPERIDOL [Suspect]
     Active Substance: HALOPERIDOL
     Route: 065
  48. HALOPERIDOL [Suspect]
     Active Substance: HALOPERIDOL
     Route: 065
  49. HALOPERIDOL DECANOATE [Suspect]
     Active Substance: HALOPERIDOL DECANOATE
     Indication: Schizophrenia
     Dosage: 50 MILLIGRAM, BIWEEKLY
     Route: 065
     Dates: start: 201311
  50. HALOPERIDOL DECANOATE [Suspect]
     Active Substance: HALOPERIDOL DECANOATE
     Dosage: 50 MILLIGRAM, BIWEEKLY
     Dates: start: 201311
  51. HALOPERIDOL DECANOATE [Suspect]
     Active Substance: HALOPERIDOL DECANOATE
     Dosage: 50 MILLIGRAM, BIWEEKLY
     Dates: start: 201311
  52. HALOPERIDOL DECANOATE [Suspect]
     Active Substance: HALOPERIDOL DECANOATE
     Dosage: 50 MILLIGRAM, BIWEEKLY
     Route: 065
     Dates: start: 201311
  53. HALOPERIDOL DECANOATE [Suspect]
     Active Substance: HALOPERIDOL DECANOATE
     Dosage: 150 MILLIGRAM, Q3W, UP TO 150MG/3WEEKS
     Route: 065
  54. HALOPERIDOL DECANOATE [Suspect]
     Active Substance: HALOPERIDOL DECANOATE
     Dosage: 150 MILLIGRAM, Q3W, UP TO 150MG/3WEEKS
  55. HALOPERIDOL DECANOATE [Suspect]
     Active Substance: HALOPERIDOL DECANOATE
     Dosage: 150 MILLIGRAM, Q3W, UP TO 150MG/3WEEKS
  56. HALOPERIDOL DECANOATE [Suspect]
     Active Substance: HALOPERIDOL DECANOATE
     Dosage: 150 MILLIGRAM, Q3W, UP TO 150MG/3WEEKS
     Route: 065
  57. HALOPERIDOL DECANOATE [Suspect]
     Active Substance: HALOPERIDOL DECANOATE
     Dosage: 100 MILLIGRAM, 28D CYCLE
     Route: 030
     Dates: start: 202303
  58. HALOPERIDOL DECANOATE [Suspect]
     Active Substance: HALOPERIDOL DECANOATE
     Dosage: 100 MILLIGRAM, 28D CYCLE
     Route: 030
     Dates: start: 202303
  59. HALOPERIDOL DECANOATE [Suspect]
     Active Substance: HALOPERIDOL DECANOATE
     Dosage: 100 MILLIGRAM, 28D CYCLE
     Dates: start: 202303
  60. HALOPERIDOL DECANOATE [Suspect]
     Active Substance: HALOPERIDOL DECANOATE
     Dosage: 100 MILLIGRAM, 28D CYCLE
     Dates: start: 202303
  61. BIPERIDEN [Suspect]
     Active Substance: BIPERIDEN
     Indication: Schizophrenia
  62. BIPERIDEN [Suspect]
     Active Substance: BIPERIDEN
     Route: 065
  63. BIPERIDEN [Suspect]
     Active Substance: BIPERIDEN
     Route: 065
  64. BIPERIDEN [Suspect]
     Active Substance: BIPERIDEN
  65. TRIFLUOPERAZINE [Suspect]
     Active Substance: TRIFLUOPERAZINE HYDROCHLORIDE
     Indication: Schizophrenia
     Dosage: 2 MILLIGRAM, QD
     Dates: start: 2015
  66. TRIFLUOPERAZINE [Suspect]
     Active Substance: TRIFLUOPERAZINE HYDROCHLORIDE
     Dosage: 2 MILLIGRAM, QD
     Dates: start: 2015
  67. TRIFLUOPERAZINE [Suspect]
     Active Substance: TRIFLUOPERAZINE HYDROCHLORIDE
     Dosage: 2 MILLIGRAM, QD
     Route: 065
     Dates: start: 2015
  68. TRIFLUOPERAZINE [Suspect]
     Active Substance: TRIFLUOPERAZINE HYDROCHLORIDE
     Dosage: 2 MILLIGRAM, QD
     Route: 065
     Dates: start: 2015
  69. TRIFLUOPERAZINE [Suspect]
     Active Substance: TRIFLUOPERAZINE HYDROCHLORIDE
     Dosage: 1 MILLIGRAM, QD
     Dates: start: 202203
  70. TRIFLUOPERAZINE [Suspect]
     Active Substance: TRIFLUOPERAZINE HYDROCHLORIDE
     Dosage: 1 MILLIGRAM, QD
     Dates: start: 202203
  71. TRIFLUOPERAZINE [Suspect]
     Active Substance: TRIFLUOPERAZINE HYDROCHLORIDE
     Dosage: 1 MILLIGRAM, QD
     Route: 065
     Dates: start: 202203
  72. TRIFLUOPERAZINE [Suspect]
     Active Substance: TRIFLUOPERAZINE HYDROCHLORIDE
     Dosage: 1 MILLIGRAM, QD
     Route: 065
     Dates: start: 202203
  73. VALPROATE [Suspect]
     Active Substance: VALPROIC ACID
     Indication: Schizophrenia
  74. VALPROATE [Suspect]
     Active Substance: VALPROIC ACID
     Route: 065
  75. VALPROATE [Suspect]
     Active Substance: VALPROIC ACID
     Route: 065
  76. VALPROATE [Suspect]
     Active Substance: VALPROIC ACID
  77. PALIPERIDONE PALMITATE [Suspect]
     Active Substance: PALIPERIDONE PALMITATE
     Indication: Schizophrenia
     Dosage: 100 MILLIGRAM, BIWEEKLY
  78. PALIPERIDONE PALMITATE [Suspect]
     Active Substance: PALIPERIDONE PALMITATE
     Dosage: 100 MILLIGRAM, BIWEEKLY
     Route: 065
  79. PALIPERIDONE PALMITATE [Suspect]
     Active Substance: PALIPERIDONE PALMITATE
     Dosage: 100 MILLIGRAM, BIWEEKLY
     Route: 065
  80. PALIPERIDONE PALMITATE [Suspect]
     Active Substance: PALIPERIDONE PALMITATE
     Dosage: 100 MILLIGRAM, BIWEEKLY

REACTIONS (9)
  - Drug ineffective [Unknown]
  - Weight increased [Unknown]
  - Akathisia [Unknown]
  - Injection site reaction [Recovering/Resolving]
  - Injection site pain [Recovering/Resolving]
  - Injection site erythema [Recovering/Resolving]
  - Injection site inflammation [Recovering/Resolving]
  - Intentional product misuse [Unknown]
  - Treatment noncompliance [Unknown]

NARRATIVE: CASE EVENT DATE: 20130801
